FAERS Safety Report 20945968 (Version 1)
Quarter: 2022Q2

REPORT INFORMATION
  Report Type: Other
  Country: US (occurrence: US)
  Receive Date: 20220610
  Receipt Date: 20220610
  Transmission Date: 20220721
  Serious: Yes (Other)
  Sender: FDA-Public Use
  Company Number: US-AMNEAL PHARMACEUTICALS-2022-AMRX-01654

PATIENT
  Sex: Female

DRUGS (1)
  1. ELURYNG [Suspect]
     Active Substance: ETHINYL ESTRADIOL\ETONOGESTREL
     Indication: Product used for unknown indication
     Dosage: 0.015MG/0.12 MG IN 1 D
     Route: 065

REACTIONS (26)
  - Suicidal ideation [Unknown]
  - Insomnia [Unknown]
  - Panic attack [Unknown]
  - Arthralgia [Unknown]
  - Back pain [Unknown]
  - Dyspepsia [Unknown]
  - Muscle spasms [Unknown]
  - Abdominal pain upper [Unknown]
  - Abdominal distension [Unknown]
  - Fatigue [Unknown]
  - Dry eye [Unknown]
  - Vaginal odour [Unknown]
  - Fungal infection [Unknown]
  - Constipation [Unknown]
  - Acne [Unknown]
  - Headache [Unknown]
  - Diarrhoea [Unknown]
  - Nausea [Unknown]
  - Anxiety [Unknown]
  - Depression [Unknown]
  - Vaginal haemorrhage [Unknown]
  - Weight increased [Unknown]
  - Mood swings [Unknown]
  - Breast tenderness [Unknown]
  - Product substitution issue [Unknown]
  - Device difficult to use [Unknown]
